FAERS Safety Report 23523948 (Version 1)
Quarter: 2024Q1

REPORT INFORMATION
  Report Type: Spontaneous
  Country: CA (occurrence: CA)
  Receive Date: 20240214
  Receipt Date: 20240214
  Transmission Date: 20240410
  Serious: Yes (Life-Threatening, Other)
  Sender: FDA-Public Use
  Company Number: CA-HLS-202400344

PATIENT
  Age: 75 Year
  Sex: Female
  Weight: 49 kg

DRUGS (6)
  1. CLOZAPINE [Suspect]
     Active Substance: CLOZAPINE
     Indication: Psychotic disorder
     Dosage: TABLETS DOSAGE FORM
     Route: 065
  2. CLOZAPINE [Suspect]
     Active Substance: CLOZAPINE
     Indication: Psychotic disorder
     Dosage: TABLET
     Route: 048
  3. HALDOL [Concomitant]
     Active Substance: HALOPERIDOL
     Dosage: AMOUNT: 6.5 MILLIGRAM?NOT SPECIFIED DOSAGE FORM
     Route: 065
  4. LAMICTAL [Concomitant]
     Active Substance: LAMOTRIGINE
     Dosage: TABLETS DOSAGE FORM
     Route: 065
  5. NEUPOGEN [Concomitant]
     Active Substance: FILGRASTIM
     Route: 042
  6. NEUPOGEN [Concomitant]
     Active Substance: FILGRASTIM
     Dosage: SOLUTION INTRAVENOUS DOSAGE FORM
     Route: 065

REACTIONS (5)
  - Adverse event [Recovered/Resolved]
  - Agranulocytosis [Recovered/Resolved]
  - Granulocytopenia [Recovered/Resolved]
  - Leukopenia [Recovered/Resolved]
  - Therapy change [Recovered/Resolved]
